FAERS Safety Report 23277184 (Version 1)
Quarter: 2023Q4

REPORT INFORMATION
  Report Type: Spontaneous
  Country: US (occurrence: None)
  Receive Date: 20231208
  Receipt Date: 20231208
  Transmission Date: 20240110
  Serious: No
  Sender: FDA-Public Use
  Company Number: None

PATIENT
  Sex: Female

DRUGS (1)
  1. AUSTEDO [Suspect]
     Active Substance: DEUTETRABENAZINE
     Indication: Extrapyramidal disorder
     Dosage: FREQUENCY : TWICE A DAY;?
     Route: 048
     Dates: start: 202310

REACTIONS (9)
  - Drug ineffective [None]
  - Depressed mood [None]
  - Impaired quality of life [None]
  - Blood pressure increased [None]
  - Heart rate increased [None]
  - Balance disorder [None]
  - Swollen tongue [None]
  - Weight increased [None]
  - Memory impairment [None]
